FAERS Safety Report 16071097 (Version 3)
Quarter: 2020Q1

REPORT INFORMATION
  Report Type: Spontaneous
  Country: US (occurrence: US)
  Receive Date: 20190314
  Receipt Date: 20200214
  Transmission Date: 20200409
  Serious: No
  Sender: FDA-Public Use
  Company Number: US-PFIZER INC-2019102741

PATIENT
  Age: 43 Year
  Sex: Male
  Weight: 90.72 kg

DRUGS (2)
  1. LYRICA [Suspect]
     Active Substance: PREGABALIN
     Indication: FIBROMYALGIA
  2. LYRICA [Suspect]
     Active Substance: PREGABALIN
     Indication: NEUROPATHY PERIPHERAL
     Dosage: 150 MG, 3X/DAY
     Route: 048
     Dates: start: 201901

REACTIONS (4)
  - Depressed mood [Recovering/Resolving]
  - Somnolence [Recovering/Resolving]
  - Hypersomnia [Unknown]
  - Weight increased [Unknown]

NARRATIVE: CASE EVENT DATE: 2019
